FAERS Safety Report 15147926 (Version 1)
Quarter: 2018Q3

REPORT INFORMATION
  Report Type: Spontaneous
  Country: IL (occurrence: IL)
  Receive Date: 20180716
  Receipt Date: 20180716
  Transmission Date: 20181010
  Serious: Yes (Hospitalization)
  Sender: FDA-Public Use
  Company Number: IL-ROCHE-2149871

PATIENT
  Age: 43 Year
  Sex: Female

DRUGS (2)
  1. FOLIC ACID. [Concomitant]
     Active Substance: FOLIC ACID
  2. MABTHERA [Suspect]
     Active Substance: RITUXIMAB
     Indication: B-CELL LYMPHOMA
     Route: 065
     Dates: end: 201711

REACTIONS (4)
  - Escherichia test positive [Unknown]
  - Erythema nodosum [Unknown]
  - Inflammatory bowel disease [Not Recovered/Not Resolved]
  - Yersinia test positive [Unknown]
